FAERS Safety Report 12503139 (Version 1)
Quarter: 2016Q2

REPORT INFORMATION
  Report Type: Spontaneous
  Country: None (occurrence: None)
  Receive Date: 20160627
  Receipt Date: 20160627
  Transmission Date: 20160815
  Serious: Yes (Hospitalization)
  Sender: FDA-Public Use
  Company Number: None

PATIENT
  Age: 70 Year
  Sex: Female
  Weight: 94.35 kg

DRUGS (9)
  1. COD LIVER OIL [Concomitant]
     Active Substance: COD LIVER OIL
  2. POTASSIUM CHLORIDE ER [Concomitant]
     Active Substance: POTASSIUM CHLORIDE
  3. HYDROCHLOROT [Concomitant]
     Active Substance: HYDROCHLOROTHIAZIDE
  4. VALSARTAN 160 MG [Suspect]
     Active Substance: VALSARTAN
     Indication: CARDIAC DISORDER
  5. SERTRALINE [Concomitant]
     Active Substance: SERTRALINE HYDROCHLORIDE
  6. PRAVASTATIN [Concomitant]
     Active Substance: PRAVASTATIN\PRAVASTATIN SODIUM
  7. LEVETIRACETAM. [Concomitant]
     Active Substance: LEVETIRACETAM
  8. DILITIAZEM ER [Concomitant]
  9. CARVEDILO [Concomitant]
     Active Substance: CARVEDILOL

REACTIONS (3)
  - Blood pressure increased [None]
  - Headache [None]
  - Malaise [None]

NARRATIVE: CASE EVENT DATE: 20160610
